FAERS Safety Report 5156043-6 (Version None)
Quarter: 2006Q4

REPORT INFORMATION
  Report Type: 
  Country: None (occurrence: None)
  Receive Date: 20061114
  Receipt Date: 20061101
  Transmission Date: 20070319
  Serious: Yes (Hospitalization)
  Sender: FDA-Public Use
  Company Number: 2006BI014802

PATIENT
  Age: 34 Year
  Sex: Female
  Weight: 158.759 kg

DRUGS (1)
  1. AVONEX [Suspect]
     Indication: MULTIPLE SCLEROSIS
     Dosage: 30 UG;QW;IM
     Route: 030
     Dates: start: 20060801, end: 20061001

REACTIONS (2)
  - GASTRIC BYPASS [None]
  - INFECTION [None]
